FAERS Safety Report 13226150 (Version 3)
Quarter: 2017Q2

REPORT INFORMATION
  Report Type: Report from Study
  Country: PL (occurrence: PL)
  Receive Date: 20170213
  Receipt Date: 20170405
  Transmission Date: 20170830
  Serious: Yes (Life-Threatening, Other)
  Sender: FDA-Public Use
  Company Number: PL-ROCHE-1887487

PATIENT
  Age: 69 Year
  Sex: Male

DRUGS (4)
  1. ZELBORAF [Suspect]
     Active Substance: VEMURAFENIB
     Dosage: DOSE REDUCTION NOT OTHERWISE SPECIFIED
     Route: 048
     Dates: start: 20161219, end: 20170119
  2. COTELLIC [Suspect]
     Active Substance: COBIMETINIB
     Dosage: DOSE REDUCTION NOT OTHERWISE SPECIFIED
     Route: 048
     Dates: start: 20161219, end: 20170119
  3. COTELLIC [Suspect]
     Active Substance: COBIMETINIB
     Indication: MALIGNANT MELANOMA
     Route: 048
     Dates: start: 20161122
  4. ZELBORAF [Suspect]
     Active Substance: VEMURAFENIB
     Indication: MALIGNANT MELANOMA
     Route: 048
     Dates: start: 20161122

REACTIONS (5)
  - Dyspnoea [Unknown]
  - Cardiac failure [Recovered/Resolved]
  - Ejection fraction decreased [Unknown]
  - Electrocardiogram QT prolonged [Unknown]
  - Fatigue [Unknown]

NARRATIVE: CASE EVENT DATE: 20161217
